FAERS Safety Report 8003504-8 (Version None)
Quarter: 2011Q4

REPORT INFORMATION
  Report Type: 
  Country: None (occurrence: None)
  Receive Date: 20111222
  Receipt Date: 20111220
  Transmission Date: 20120403
  Serious: No
  Sender: FDA-Public Use
  Company Number: US-PFIZER INC-2011309280

PATIENT
  Age: 50 Year
  Sex: Female
  Weight: 57.596 kg

DRUGS (2)
  1. IBUPROFEN (ADVIL) [Suspect]
     Indication: OSTEONECROSIS
     Dosage: 400 MG, 1X/DAY
     Route: 048
     Dates: start: 20110201, end: 20110401
  2. IBUPROFEN (ADVIL) [Suspect]
     Dosage: 400 MG, 1X/DAY
     Route: 048
     Dates: start: 20111101, end: 20111101

REACTIONS (6)
  - PRURITUS GENERALISED [None]
  - VERTIGO [None]
  - ARTHRALGIA [None]
  - SCRATCH [None]
  - CHEST PAIN [None]
  - RASH MACULAR [None]
